FAERS Safety Report 6569427-6 (Version None)
Quarter: 2010Q1

REPORT INFORMATION
  Report Type: 
  Country: None (occurrence: None)
  Receive Date: 20100202
  Receipt Date: 20100202
  Transmission Date: 20100710
  Serious: Yes (Hospitalization)
  Sender: FDA-Public Use
  Company Number: None

PATIENT
  Age: 74 Year
  Sex: Male
  Weight: 63.9572 kg

DRUGS (1)
  1. CEPHALEXIN [Suspect]
     Indication: SURGERY
     Dosage: 2 CAPSULES EVERY 8 HRS. MOUTH
     Route: 048
     Dates: start: 20091026

REACTIONS (9)
  - ABDOMINAL DISTENSION [None]
  - ABDOMINAL PAIN UPPER [None]
  - ASTHENIA [None]
  - DEHYDRATION [None]
  - JAUNDICE [None]
  - PRURITUS [None]
  - TREMOR [None]
  - VOMITING [None]
  - WEIGHT DECREASED [None]
